FAERS Safety Report 8549849-4 (Version None)
Quarter: 2012Q3

REPORT INFORMATION
  Report Type: 
  Country: None (occurrence: None)
  Receive Date: 20120730
  Receipt Date: 20120404
  Transmission Date: 20120928
  Serious: No
  Sender: FDA-Public Use
  Company Number: US-GLAXOSMITHKLINE-A0924259A

PATIENT
  Sex: Female

DRUGS (3)
  1. IMITREX [Suspect]
     Indication: PRODUCT USED FOR UNKNOWN INDICATION
     Dosage: 100MG VARIABLE DOSE
     Route: 048
     Dates: start: 20100330
  2. FLONASE [Suspect]
     Indication: PRODUCT USED FOR UNKNOWN INDICATION
     Dosage: 50MCG UNKNOWN
     Route: 045
     Dates: start: 20100617
  3. ADVAIR DISKUS 100/50 [Suspect]
     Indication: PRODUCT USED FOR UNKNOWN INDICATION
     Route: 055
     Dates: start: 20100412

REACTIONS (11)
  - DISORIENTATION [None]
  - MALAISE [None]
  - PYREXIA [None]
  - PAIN [None]
  - NAUSEA [None]
  - DYSPNOEA [None]
  - HEADACHE [None]
  - VOMITING [None]
  - DRUG ADMINISTRATION ERROR [None]
  - AGITATION [None]
  - STRESS [None]
